FAERS Safety Report 7931435-8 (Version None)
Quarter: 2011Q4

REPORT INFORMATION
  Report Type: 
  Country: None (occurrence: None)
  Receive Date: 20111121
  Receipt Date: 20111115
  Transmission Date: 20120403
  Serious: Yes (Hospitalization)
  Sender: FDA-Public Use
  Company Number: CA-BRISTOL-MYERS SQUIBB COMPANY-14952444

PATIENT
  Age: 82 Year
  Sex: Female

DRUGS (15)
  1. NORVASC [Concomitant]
  2. NEXIUM [Concomitant]
  3. METHOTREXATE [Concomitant]
  4. SOFLAX [Concomitant]
  5. HYDROXYCHLOROQUINE SULFATE [Concomitant]
  6. LEVOTHYROXINE SODIUM [Concomitant]
  7. FUROSEMIDE [Concomitant]
  8. ACETYLSALICYLIC ACID SRT [Concomitant]
  9. COZAAR [Concomitant]
  10. FERROUS GLUCONATE [Concomitant]
  11. ASCORBIC ACID [Concomitant]
  12. FOLIC ACID [Concomitant]
  13. LIPITOR [Concomitant]
  14. ORENCIA [Suspect]
     Indication: RHEUMATOID ARTHRITIS
     Dosage: INFUSON:20,DATES:28DEC09,19AUG10,3MAR11,11MAY,8JUN11,16OCT11 EXP:JUL13, LOT:1F66433,EXP:OC2013
     Route: 042
     Dates: start: 20091228
  15. VITAMIN D [Concomitant]

REACTIONS (7)
  - WHEEZING [None]
  - PNEUMONIA [None]
  - LOWER RESPIRATORY TRACT INFECTION [None]
  - PARANASAL SINUS HYPERSECRETION [None]
  - CHEST DISCOMFORT [None]
  - PULMONARY OEDEMA [None]
  - FATIGUE [None]
